FAERS Safety Report 8961377 (Version 1)
Quarter: 2012Q4

REPORT INFORMATION
  Report Type: 
  Country: US (occurrence: US)
  Receive Date: 20121213
  Receipt Date: 20121213
  Transmission Date: 20130627
  Serious: No
  Sender: FDA-Public Use
  Company Number: US-ALLERGAN-1202105US

PATIENT
  Sex: Female

DRUGS (2)
  1. ACZONE [Suspect]
     Indication: ACNE
     Dosage: apply to affected area, BID
     Route: 061
     Dates: start: 201112, end: 201112
  2. ACZONE [Suspect]
     Dosage: applied to affected area, at night
     Route: 061

REACTIONS (3)
  - Rash [Recovered/Resolved]
  - Rash [Recovered/Resolved]
  - Urticaria [Recovered/Resolved]
